FAERS Safety Report 6558208-5 (Version None)
Quarter: 2010Q1

REPORT INFORMATION
  Report Type: 
  Country: None (occurrence: None)
  Receive Date: 20100127
  Receipt Date: 20100127
  Transmission Date: 20100710
  Serious: Yes (Hospitalization)
  Sender: FDA-Public Use
  Company Number: None

PATIENT
  Age: 71 Year
  Sex: Female
  Weight: 62.27 kg

DRUGS (21)
  1. OXYCONTIN [Suspect]
     Indication: FIBROMYALGIA
     Dosage: 20 MG TID PO, CHRONIC
     Route: 048
  2. AVINZA [Suspect]
     Indication: FIBROMYALGIA
     Dosage: 90 MG DAILY PO, CHRONIC
     Route: 048
  3. DARVOCET [Suspect]
     Indication: FIBROMYALGIA
     Dosage: 1-2 TABS PRN PO, CHRONIC
  4. SOMA [Concomitant]
     Indication: FIBROMYALGIA
     Dosage: 1 TAB TID PRN PO, CHRONIC
  5. QUINAPRAL [Concomitant]
  6. NEURONTIN [Concomitant]
  7. ACEBUTOL [Concomitant]
  8. AMITRIPTYLINE HCL [Concomitant]
  9. NABAMETONE [Concomitant]
  10. VYTORIN [Concomitant]
  11. LASIX [Concomitant]
  12. LEXAPRO [Concomitant]
  13. NORVASC [Concomitant]
  14. TRICOR [Concomitant]
  15. CAT D [Concomitant]
  16. VITAMIN-MINERAL COMPOUND TAB [Concomitant]
  17. LEVAQUIN [Concomitant]
  18. ASPIRIN [Concomitant]
  19. CENTRUM SILVER [Concomitant]
  20. CUMARA [Concomitant]
  21. METFORMIN HCL [Concomitant]

REACTIONS (7)
  - ALTERED STATE OF CONSCIOUSNESS [None]
  - BLOOD PRESSURE INCREASED [None]
  - CONFUSIONAL STATE [None]
  - OVERDOSE [None]
  - PNEUMONIA [None]
  - SOMNOLENCE [None]
  - TREATMENT NONCOMPLIANCE [None]
